FAERS Safety Report 8245521-9 (Version None)
Quarter: 2012Q1

REPORT INFORMATION
  Report Type: 
  Country: None (occurrence: None)
  Receive Date: 20120329
  Receipt Date: 20120315
  Transmission Date: 20120608
  Serious: Yes (Other)
  Sender: FDA-Public Use
  Company Number: AT-AMGEN-AUTSP2012018523

PATIENT
  Age: 21 Year
  Sex: Male

DRUGS (3)
  1. ETANERCEPT [Suspect]
     Indication: PRODUCT USED FOR UNKNOWN INDICATION
     Dosage: 50 MG/WEEK
     Route: 058
  2. DAPSONE [Suspect]
     Indication: SKIN DISORDER
     Dosage: 50 MG, DAILY
  3. INFLIXIMAB [Suspect]
     Indication: HIDRADENITIS
     Dosage: 5 MG/KG BODY WEIGHT
     Route: 042

REACTIONS (3)
  - BRAIN ABSCESS [None]
  - METHAEMOGLOBINAEMIA [None]
  - BACTERAEMIA [None]
